FAERS Safety Report 25938930 (Version 2)
Quarter: 2025Q4

REPORT INFORMATION
  Report Type: Spontaneous
  Country: CN (occurrence: CN)
  Receive Date: 20251019
  Receipt Date: 20251116
  Transmission Date: 20260118
  Serious: Yes (Disabling)
  Sender: ABBVIE
  Company Number: CN-PFIZER INC-PV202500121557

PATIENT
  Age: 78 Year
  Sex: Male
  Weight: 55 kg

DRUGS (6)
  1. AVIBACTAM SODIUM\CEFTAZIDIME [Suspect]
     Active Substance: AVIBACTAM SODIUM\CEFTAZIDIME
     Indication: Pneumonia
     Dosage: 2.5 G, 3X/DAY
     Route: 041
     Dates: start: 20250903, end: 20250919
  2. COLISTIMETHATE SODIUM [Suspect]
     Active Substance: COLISTIMETHATE SODIUM
     Indication: Pneumonia
     Dosage: 75 MG, 2X/DAY
     Route: 041
     Dates: start: 20250903, end: 20250919
  3. STERILE WATER [Concomitant]
     Active Substance: WATER
     Indication: Vehicle solution use
     Dosage: 2 ML, 3X/DAY
     Route: 041
     Dates: start: 20250903, end: 20250919
  4. STERILE WATER [Concomitant]
     Active Substance: WATER
     Indication: Vehicle solution use
     Dosage: 2 ML, 2X/DAY
     Route: 041
     Dates: start: 20250903, end: 20250919
  5. SODIUM CHLORIDE [Concomitant]
     Active Substance: SODIUM CHLORIDE
     Indication: Vehicle solution use
     Dosage: 100 ML, 3X/DAY
     Route: 041
     Dates: start: 20250903, end: 20250919
  6. SODIUM CHLORIDE [Concomitant]
     Active Substance: SODIUM CHLORIDE
     Indication: Vehicle solution use
     Dosage: 100 ML, 2X/DAY
     Route: 041
     Dates: start: 20250903, end: 20250919

REACTIONS (1)
  - Blood creatinine increased [Recovering/Resolving]

NARRATIVE: CASE EVENT DATE: 20250913
